FAERS Safety Report 23097450 (Version 1)
Quarter: 2023Q4

REPORT INFORMATION
  Report Type: Spontaneous
  Country: GB (occurrence: GB)
  Receive Date: 20231023
  Receipt Date: 20231023
  Transmission Date: 20240110
  Serious: Yes (Other)
  Sender: FDA-Public Use
  Company Number: GB-PFIZER INC-PV202300170274

PATIENT
  Age: 30 Year
  Sex: Female

DRUGS (7)
  1. METHOTREXATE SODIUM [Interacting]
     Active Substance: METHOTREXATE SODIUM
     Indication: Psoriasis
     Dosage: 25 MG, WEEKLY
     Route: 048
  2. APAZONE [Interacting]
     Active Substance: APAZONE
     Indication: Arthralgia
     Dosage: 2.4 G ON THE FIRST DAY
  3. APAZONE [Interacting]
     Active Substance: APAZONE
     Dosage: 1.8 G ON THE SECOND
  4. APAZONE [Interacting]
     Active Substance: APAZONE
     Dosage: THEN 1.2 G FOR 7 DAYS
  5. DIPYRIDAMOLE [Concomitant]
     Active Substance: DIPYRIDAMOLE
     Dosage: 300 MG, DAILY
  6. ASPIRIN [Concomitant]
     Active Substance: ASPIRIN
     Dosage: 300 MG, DAILY
  7. CLOFIBRATE [Concomitant]
     Active Substance: CLOFIBRATE
     Indication: Hypercholesterolaemia
     Dosage: 1500 MG, DAILY

REACTIONS (3)
  - Drug interaction [Unknown]
  - Toxicity to various agents [Recovered/Resolved]
  - Bone marrow failure [Recovered/Resolved]
